FAERS Safety Report 4883186-4 (Version None)
Quarter: 2006Q1

REPORT INFORMATION
  Report Type: 
  Country: None (occurrence: None)
  Receive Date: 20060117
  Receipt Date: 20060117
  Transmission Date: 20060701
  Serious: Yes (Other)
  Sender: FDA-Public Use
  Company Number: None

PATIENT
  Age: 52 Year
  Sex: Male
  Weight: 86.1834 kg

DRUGS (1)
  1. LISTERINE POCKET MIST [Suspect]
     Dates: start: 20060101, end: 20060116

REACTIONS (3)
  - CANDIDIASIS [None]
  - LIP DISORDER [None]
  - TRISMUS [None]
